FAERS Safety Report 17898611 (Version 1)
Quarter: 2020Q2

REPORT INFORMATION
  Report Type: Spontaneous
  Country: IT (occurrence: IT)
  Receive Date: 20200615
  Receipt Date: 20200615
  Transmission Date: 20200714
  Serious: Yes (Other)
  Sender: FDA-Public Use
  Company Number: IT-MYLANLABS-2020M1056975

PATIENT
  Age: 18 Month
  Sex: Female

DRUGS (16)
  1. IBUPROFEN. [Suspect]
     Active Substance: IBUPROFEN
     Indication: PAIN
     Dosage: 10 MILLIGRAM/KILOGRAM
     Route: 048
  2. PHENOBARBITAL. [Suspect]
     Active Substance: PHENOBARBITAL
     Indication: EPILEPTIC ENCEPHALOPATHY
     Dosage: 5 MILLIGRAM/KILOGRAM, QD
     Route: 065
  3. BOTULINUM TOXIN [Concomitant]
     Active Substance: BOTULINUM TOXIN NOS
     Indication: DYSTONIA
     Dosage: 200 INTERNATIONAL UNIT IN CERVICODORSAL REGION
     Route: 048
  4. GABAPENTIN. [Suspect]
     Active Substance: GABAPENTIN
     Indication: DYSTONIA
     Dosage: 24 MILLIGRAM/KILOGRAM, QD
     Route: 065
  5. ACETAMINOPHEN. [Suspect]
     Active Substance: ACETAMINOPHEN
     Indication: PAIN
     Dosage: 15 MILLIGRAM/KILOGRAM
     Route: 048
  6. MORPHINE [Suspect]
     Active Substance: MORPHINE
     Indication: PAIN
     Dosage: 0.3-0.4 MG/KG/DOSE
     Route: 048
  7. LORAZEPAM. [Suspect]
     Active Substance: LORAZEPAM
     Indication: DYSTONIA
     Dosage: 0.05 MILLIGRAM/KILOGRAM 0.05 MG/KG/DOSE
     Route: 065
  8. FENTANYL. [Suspect]
     Active Substance: FENTANYL
     Indication: PAIN
     Dosage: 2 MICROGRAM/KILOGRAM
     Route: 045
  9. DEXMEDETOMIDINE. [Suspect]
     Active Substance: DEXMEDETOMIDINE
     Dosage: 2.5 MICROGRAM/KILOGRAM PER DOSE AT HOME; VIA A MUCOSAL ATOMIZATION DEVICE
     Route: 045
  10. BACLOFEN. [Suspect]
     Active Substance: BACLOFEN
     Indication: DYSTONIA
     Dosage: 1.8 MILLIGRAM/KILOGRAM, QD
     Route: 065
  11. LEVETIRACETAM. [Suspect]
     Active Substance: LEVETIRACETAM
     Indication: EPILEPTIC ENCEPHALOPATHY
     Dosage: 10 MILLIGRAM/KILOGRAM, QD
     Route: 065
  12. DEXMEDETOMIDINE. [Suspect]
     Active Substance: DEXMEDETOMIDINE
     Indication: DYSTONIA
     Dosage: 2.7 MICROGRAM/KILOGRAM VIA A MUCOSAL ATOMIZATION DEVICE
     Route: 045
  13. SODIUM VALPROATE [Suspect]
     Active Substance: VALPROATE SODIUM
     Indication: EPILEPTIC ENCEPHALOPATHY
     Dosage: 50 MILLIGRAM/KILOGRAM, QD
     Route: 065
  14. ADRENOCORTICOTROPHIC HORMONE [Suspect]
     Active Substance: CORTICOTROPIN
     Indication: EPILEPTIC ENCEPHALOPATHY
     Dosage: RECEIVED DURING THE FIRST MONTHS OF LIFE
     Route: 065
  15. VIGABATRIN. [Suspect]
     Active Substance: VIGABATRIN
     Indication: EPILEPTIC ENCEPHALOPATHY
     Dosage: RECEIVED DURING THE FIRST MONTHS OF LIFE
     Route: 065
  16. TETRABENAZINE. [Suspect]
     Active Substance: TETRABENAZINE
     Indication: DYSTONIA
     Dosage: 7.5 MILLIGRAM/KILOGRAM, QD
     Route: 065

REACTIONS (2)
  - Off label use [Unknown]
  - Drug ineffective [Unknown]
